FAERS Safety Report 23604499 (Version 1)
Quarter: 2024Q1

REPORT INFORMATION
  Report Type: Spontaneous
  Country: PT (occurrence: PT)
  Receive Date: 20240307
  Receipt Date: 20240307
  Transmission Date: 20240410
  Serious: Yes (Hospitalization)
  Sender: FDA-Public Use
  Company Number: None

PATIENT
  Age: 71 Year
  Sex: Male

DRUGS (41)
  1. VALGANCICLOVIR [Suspect]
     Active Substance: VALGANCICLOVIR
     Indication: Cytomegalovirus viraemia
     Dosage: INCREASED TO 450 MG, BID, MONTH 8?DAILY DOSE: 900 MILLIGRAM
  2. VALGANCICLOVIR [Suspect]
     Active Substance: VALGANCICLOVIR
     Indication: Cytomegalovirus viraemia
     Dosage: DISCHARGE?DAILY DOSE: 450 MILLIGRAM
  3. VALGANCICLOVIR [Suspect]
     Active Substance: VALGANCICLOVIR
     Indication: Cytomegalovirus viraemia
     Dosage: MONTH 1?DAILY DOSE: 450 MILLIGRAM
  4. VALGANCICLOVIR [Suspect]
     Active Substance: VALGANCICLOVIR
     Indication: Cytomegalovirus viraemia
     Dosage: MONTH 3?DAILY DOSE: 450 MILLIGRAM
  5. VALGANCICLOVIR [Suspect]
     Active Substance: VALGANCICLOVIR
     Indication: Cytomegalovirus viraemia
     Dosage: MONTH 5?DAILY DOSE: 450 MILLIGRAM
  6. VALGANCICLOVIR [Suspect]
     Active Substance: VALGANCICLOVIR
     Indication: Cytomegalovirus viraemia
     Dosage: MONTH 10?DAILY DOSE: 450 MILLIGRAM
  7. VALGANCICLOVIR [Suspect]
     Active Substance: VALGANCICLOVIR
     Indication: Cytomegalovirus viraemia
     Dosage: MONTH 11?DAILY DOSE: 450 MILLIGRAM
  8. VALGANCICLOVIR [Suspect]
     Active Substance: VALGANCICLOVIR
     Indication: Cytomegalovirus viraemia
     Dosage: MONTH 14?DAILY DOSE: 450 MILLIGRAM
  9. PREDNISOLONE [Suspect]
     Active Substance: PREDNISOLONE
     Indication: Immunosuppressant drug therapy
     Dosage: DISCHARGE?DAILY DOSE: 20 MILLIGRAM
     Dates: start: 2016
  10. PREDNISOLONE [Suspect]
     Active Substance: PREDNISOLONE
     Indication: Immunosuppressant drug therapy
     Dosage: MONTH 1?DAILY DOSE: 15 MILLIGRAM
  11. PREDNISOLONE [Suspect]
     Active Substance: PREDNISOLONE
     Indication: Immunosuppressant drug therapy
     Dosage: MONTH 3?DAILY DOSE: 12.5 MILLIGRAM
  12. PREDNISOLONE [Suspect]
     Active Substance: PREDNISOLONE
     Indication: Immunosuppressant drug therapy
     Dosage: MONTH 5?DAILY DOSE: 7.5 MILLIGRAM
  13. PREDNISOLONE [Suspect]
     Active Substance: PREDNISOLONE
     Indication: Immunosuppressant drug therapy
     Dosage: MONTH 8?DAILY DOSE: 10 MILLIGRAM PER CUBIC METRE
  14. PREDNISOLONE [Suspect]
     Active Substance: PREDNISOLONE
     Indication: Immunosuppressant drug therapy
     Dosage: MONTH 10?DAILY DOSE: 5 MILLIGRAM
  15. PREDNISOLONE [Suspect]
     Active Substance: PREDNISOLONE
     Indication: Immunosuppressant drug therapy
     Dosage: MONTH 11?DAILY DOSE: 2.5 MILLIGRAM
  16. PREDNISOLONE [Suspect]
     Active Substance: PREDNISOLONE
     Indication: Immunosuppressant drug therapy
     Dosage: MONTH 14?DAILY DOSE: 5 MILLIGRAM
  17. MYCOPHENOLATE MOFETIL [Suspect]
     Active Substance: MYCOPHENOLATE MOFETIL
     Indication: Immunosuppressant drug therapy
     Dosage: 750 MG, BID, DISCHARGE?DAILY DOSE: 1500 MILLIGRAM
     Dates: start: 2016
  18. MYCOPHENOLATE MOFETIL [Suspect]
     Active Substance: MYCOPHENOLATE MOFETIL
     Indication: Immunosuppressant drug therapy
     Dosage: 250 MG, BID, MONTH 1?DAILY DOSE: 500 MILLIGRAM
  19. MYCOPHENOLATE MOFETIL [Suspect]
     Active Substance: MYCOPHENOLATE MOFETIL
     Indication: Immunosuppressant drug therapy
     Dosage: MONTH 3?DAILY DOSE: 250 MILLIGRAM
  20. MYCOPHENOLATE MOFETIL [Suspect]
     Active Substance: MYCOPHENOLATE MOFETIL
     Indication: Immunosuppressant drug therapy
     Dosage: BID, MONTH 5?DAILY DOSE: 500 MILLIGRAM
  21. MYCOPHENOLATE MOFETIL [Suspect]
     Active Substance: MYCOPHENOLATE MOFETIL
     Indication: Immunosuppressant drug therapy
     Dosage: TID, MONTH 8?DAILY DOSE: 750 MILLIGRAM
  22. MYCOPHENOLATE MOFETIL [Suspect]
     Active Substance: MYCOPHENOLATE MOFETIL
     Indication: Immunosuppressant drug therapy
     Dosage: BID, MONTH 10?DAILY DOSE: 500 MILLIGRAM
  23. MYCOPHENOLATE MOFETIL [Suspect]
     Active Substance: MYCOPHENOLATE MOFETIL
     Indication: Immunosuppressant drug therapy
     Dosage: MONTH 11?DAILY DOSE: 250 MILLIGRAM
  24. MYCOPHENOLATE MOFETIL [Suspect]
     Active Substance: MYCOPHENOLATE MOFETIL
     Indication: Immunosuppressant drug therapy
     Dosage: TID, MONTH 14?DAILY DOSE: 750 MILLIGRAM
  25. THYMOGLOBULIN [Suspect]
     Active Substance: LAPINE T-LYMPHOCYTE IMMUNE GLOBULIN
     Indication: Immunosuppressant drug therapy
     Dosage: 7-DAY CYCLE
     Route: 042
  26. LEFLUNOMIDE [Suspect]
     Active Substance: LEFLUNOMIDE
     Dosage: MONTH 3?DAILY DOSE: 10 MILLIGRAM
  27. LEFLUNOMIDE [Suspect]
     Active Substance: LEFLUNOMIDE
     Dosage: DAILY DOSE: 20 MILLIGRAM
  28. LEFLUNOMIDE [Suspect]
     Active Substance: LEFLUNOMIDE
     Dosage: MONTH 5?DAILY DOSE: 20 MILLIGRAM
  29. LEFLUNOMIDE [Suspect]
     Active Substance: LEFLUNOMIDE
     Dosage: MONTH 8?DAILY DOSE: 20 MILLIGRAM
  30. LEFLUNOMIDE [Suspect]
     Active Substance: LEFLUNOMIDE
     Dosage: MONTH 10?DAILY DOSE: 20 MILLIGRAM
  31. LEFLUNOMIDE [Suspect]
     Active Substance: LEFLUNOMIDE
     Dosage: MONTH 11?DAILY DOSE: 20 MILLIGRAM
  32. LEFLUNOMIDE [Suspect]
     Active Substance: LEFLUNOMIDE
     Dosage: MONTH 14?DAILY DOSE: 20 MILLIGRAM
  33. TACROLIMUS [Suspect]
     Active Substance: TACROLIMUS
     Indication: Immunosuppressant drug therapy
     Dosage: DISCHARGE?DAILY DOSE: 9 MILLIGRAM
     Dates: start: 2016
  34. TACROLIMUS [Suspect]
     Active Substance: TACROLIMUS
     Indication: Immunosuppressant drug therapy
     Dosage: MONTH 3?DAILY DOSE: 7.5 MILLIGRAM
  35. TACROLIMUS [Suspect]
     Active Substance: TACROLIMUS
     Indication: Immunosuppressant drug therapy
     Dosage: MONTH 5?DAILY DOSE: 6.5 MILLIGRAM
  36. TACROLIMUS [Suspect]
     Active Substance: TACROLIMUS
     Indication: Immunosuppressant drug therapy
     Dosage: MONTH 8?DAILY DOSE: 5.5 MILLIGRAM
  37. TACROLIMUS [Suspect]
     Active Substance: TACROLIMUS
     Indication: Immunosuppressant drug therapy
     Dosage: MONTH 11?DAILY DOSE: 4.5 MILLIGRAM
  38. TACROLIMUS [Suspect]
     Active Substance: TACROLIMUS
     Indication: Immunosuppressant drug therapy
     Dosage: MONTH 11?DAILY DOSE: 4 MILLIGRAM
  39. TACROLIMUS [Suspect]
     Active Substance: TACROLIMUS
     Indication: Immunosuppressant drug therapy
     Dosage: MONTH 14?DAILY DOSE: 3.5 MILLIGRAM
  40. TACROLIMUS [Suspect]
     Active Substance: TACROLIMUS
     Indication: Immunosuppressant drug therapy
     Dosage: DAILY DOSE: 9 MILLIGRAM
  41. TACROLIMUS [Suspect]
     Active Substance: TACROLIMUS
     Indication: Immunosuppressant drug therapy
     Dosage: MONTH 1?DAILY DOSE: 9 MILLIGRAM

REACTIONS (3)
  - Polyomavirus-associated nephropathy [Unknown]
  - Renal impairment [Unknown]
  - Off label use [Unknown]
